FAERS Safety Report 9450183 (Version 2)
Quarter: 2013Q3

REPORT INFORMATION
  Report Type: Spontaneous
  Country: US (occurrence: US)
  Receive Date: 20130809
  Receipt Date: 20130830
  Transmission Date: 20140515
  Serious: No
  Sender: FDA-Public Use
  Company Number: US-VERTEX PHARMACEUTICALS INC-2013-008637

PATIENT
  Age: 57 Year
  Sex: Male
  Weight: 93 kg

DRUGS (6)
  1. INCIVEK [Suspect]
     Indication: HEPATITIS C
     Dosage: 750 MG, TID
     Route: 048
     Dates: start: 20130715, end: 20130803
  2. INCIVEK [Suspect]
     Dosage: 750 MG, TID
     Route: 048
  3. PEGASYS [Suspect]
     Indication: HEPATITIS C
     Dosage: UNK, QW
     Route: 058
     Dates: start: 20130715, end: 20130803
  4. PEGASYS [Suspect]
     Dosage: 180 ?G, UNK
     Route: 058
  5. RIBAVIRIN [Suspect]
     Indication: HEPATITIS C
     Dosage: 400 MG QAM, 600 MG QPM
     Route: 048
     Dates: start: 20130715, end: 20130803
  6. RIBAVIRIN [Suspect]
     Dosage: 400MG AM, 600MG PM
     Route: 048

REACTIONS (7)
  - White blood cell count decreased [Not Recovered/Not Resolved]
  - Irritability [Not Recovered/Not Resolved]
  - Drug abuse [Unknown]
  - Malaise [Recovered/Resolved]
  - Off label use [Unknown]
  - Drug dose omission [Not Recovered/Not Resolved]
  - Pruritus [Not Recovered/Not Resolved]
